FAERS Safety Report 8790482 (Version 1)
Quarter: 2012Q4

REPORT INFORMATION
  Report Type: Spontaneous
  Country: JP (occurrence: None)
  Receive Date: 20120906
  Receipt Date: 20120906
  Transmission Date: 20130627
  Serious: No
  Sender: FDA-Public Use
  Company Number: DKLU1084270

PATIENT

DRUGS (2)
  1. INDOCIN [Suspect]
     Indication: PROPHYLAXIS
     Dosage: 0.1 mg/ kg milligram (s)  / kilogram (s), Intravenous (not otherwise specified)
     Route: 042
  2. MENATETRENONE [Suspect]
     Indication: PROPHYLAXIS
     Dosage: Intravenous (not otherwise)
     Route: 042

REACTIONS (2)
  - Drug ineffective [None]
  - Patent ductus arteriosus repair [None]
